FAERS Safety Report 23703365 (Version 1)
Quarter: 2024Q2

REPORT INFORMATION
  Report Type: Spontaneous
  Country: US (occurrence: None)
  Receive Date: 20240403
  Receipt Date: 20240403
  Transmission Date: 20240715
  Serious: Yes (Other)
  Sender: FDA-Public Use
  Company Number: 2024A073678

PATIENT
  Age: 616 Month
  Sex: Female

DRUGS (1)
  1. FARXIGA [Suspect]
     Active Substance: DAPAGLIFLOZIN PROPANEDIOL
     Indication: Diabetes mellitus
     Dosage: UNKNOWN
     Route: 048
     Dates: end: 201804

REACTIONS (12)
  - Cerebrovascular accident [Recovered/Resolved with Sequelae]
  - Brain injury [Unknown]
  - Coronary artery dissection [Recovered/Resolved with Sequelae]
  - Feeling abnormal [Unknown]
  - Genital burning sensation [Recovered/Resolved]
  - Fungal infection [Recovered/Resolved]
  - Genital rash [Recovered/Resolved]
  - Vulvovaginal pain [Recovered/Resolved]
  - Job dissatisfaction [Not Recovered/Not Resolved]
  - Gait disturbance [Unknown]
  - Cerebral disorder [Recovered/Resolved]
  - Vulvovaginal mycotic infection [Recovered/Resolved]

NARRATIVE: CASE EVENT DATE: 20180401
